FAERS Safety Report 24263918 (Version 1)
Quarter: 2024Q3

REPORT INFORMATION
  Report Type: Spontaneous
  Country: US (occurrence: None)
  Receive Date: 20240828
  Receipt Date: 20240828
  Transmission Date: 20241016
  Serious: Yes (Death)
  Sender: Public
  Company Number: None

PATIENT
  Age: 71 Year
  Sex: Female

DRUGS (1)
  1. DILAUDID [Suspect]
     Active Substance: HYDROMORPHONE HYDROCHLORIDE
     Indication: Abdominal pain upper
     Dosage: OTHER ROUTE : IV INJECTION;?
     Route: 050
     Dates: start: 20231219, end: 20231219

REACTIONS (10)
  - Unresponsive to stimuli [None]
  - Injection related reaction [None]
  - Cardio-respiratory arrest [None]
  - Acute respiratory failure [None]
  - Endotracheal intubation complication [None]
  - Hypoxia [None]
  - Chronic obstructive pulmonary disease [None]
  - COVID-19 [None]
  - Pneumonia [None]
  - Abdominal discomfort [None]

NARRATIVE: CASE EVENT DATE: 20231219
